FAERS Safety Report 12556342 (Version 8)
Quarter: 2018Q4

REPORT INFORMATION
  Report Type: Spontaneous
  Country: AT (occurrence: AT)
  Receive Date: 20160714
  Receipt Date: 20181109
  Transmission Date: 20190204
  Serious: Yes (Other)
  Sender: FDA-Public Use
  Company Number: AT-PFIZER INC-2016076695

PATIENT
  Age: 16 Year
  Sex: Female

DRUGS (12)
  1. ABILIFY [Interacting]
     Active Substance: ARIPIPRAZOLE
     Indication: PERSONALITY DISORDER
     Dosage: 15 MG, UNK
     Route: 048
     Dates: end: 20151108
  2. TEMESTA (LORAZEPAM) [Interacting]
     Active Substance: LORAZEPAM
     Dosage: 1 MG, UNK
     Route: 048
  3. DEPAKINE [Concomitant]
     Active Substance: VALPROATE SODIUM
     Dosage: 600 MG, 1X/DAY
     Route: 065
  4. NOZINAN [Interacting]
     Active Substance: LEVOMEPROMAZINE
     Dosage: 150 MG, UNK
     Route: 048
     Dates: start: 20151107, end: 20151107
  5. SEROQUEL XR [Interacting]
     Active Substance: QUETIAPINE FUMARATE
     Indication: TIC
     Dosage: 200 MG, UNK (SINCE WEEKS)
     Route: 048
     Dates: start: 20151108, end: 20151108
  6. DEPAKINE [Concomitant]
     Active Substance: VALPROATE SODIUM
     Dosage: 1000 MG, 1X/DAY
  7. NOZINAN [Interacting]
     Active Substance: LEVOMEPROMAZINE
     Dosage: 50 MG, UNK
     Route: 048
     Dates: start: 20151106, end: 20151106
  8. TEMESTA [LORAZEPAM] [Suspect]
     Active Substance: LORAZEPAM
     Dosage: 2.5 MG, 1X/DAY
     Route: 048
     Dates: end: 20151107
  9. TEMESTA (LORAZEPAM) [Interacting]
     Active Substance: LORAZEPAM
     Dosage: 6 MG, UNK
     Route: 042
     Dates: end: 20151105
  10. ABILIFY [Interacting]
     Active Substance: ARIPIPRAZOLE
     Dosage: 10 MG, UNK
     Route: 048
     Dates: end: 20151111
  11. SEROQUEL XR [Interacting]
     Active Substance: QUETIAPINE FUMARATE
     Indication: PERSONALITY DISORDER
     Dosage: INCREASING TILL 700 MG, UNK
     Route: 048
  12. TEMESTA (LORAZEPAM) [Interacting]
     Active Substance: LORAZEPAM
     Dosage: 2 MG, 1X/DAY
     Route: 042
     Dates: end: 20151111

REACTIONS (5)
  - Urinary retention [Recovered/Resolved]
  - Disease recurrence [Recovered/Resolved]
  - Drug interaction [Unknown]
  - Urinary retention [Recovered/Resolved]
  - Abdominal pain lower [Recovered/Resolved]

NARRATIVE: CASE EVENT DATE: 20151108
